FAERS Safety Report 7079473-4 (Version None)
Quarter: 2010Q4

REPORT INFORMATION
  Report Type: 
  Country: None (occurrence: None)
  Receive Date: 20101102
  Receipt Date: 20101025
  Transmission Date: 20110411
  Serious: Yes (Other)
  Sender: FDA-Public Use
  Company Number: US-JNJFOC-20100800964

PATIENT
  Sex: Female

DRUGS (2)
  1. CHILDREN'S MOTRIN [Suspect]
     Route: 065
  2. CHILDREN'S MOTRIN [Suspect]
     Indication: PYREXIA
     Dosage: GAVE 2 DOSES ON 13-JUN-2010, BUT HAD ALREADY USED HALF OF THE BOTTLE PRIOR.
     Route: 065

REACTIONS (3)
  - DRUG INEFFECTIVE [None]
  - FEBRILE CONVULSION [None]
  - PRODUCT QUALITY ISSUE [None]
